FAERS Safety Report 6291302-5 (Version None)
Quarter: 2009Q3

REPORT INFORMATION
  Report Type: 
  Country: None (occurrence: None)
  Receive Date: 20090730
  Receipt Date: 20090723
  Transmission Date: 20100115
  Serious: Yes (Disabling)
  Sender: FDA-Public Use
  Company Number: US-MERCK-0606USA05284

PATIENT
  Age: 53 Year
  Sex: Female
  Weight: 66 kg

DRUGS (7)
  1. FOSAMAX [Suspect]
     Indication: OSTEOPOROSIS
     Route: 048
     Dates: start: 19991219, end: 20001001
  2. FOSAMAX [Suspect]
     Route: 048
     Dates: start: 20011212, end: 20051221
  3. FOSAMAX [Suspect]
     Indication: OSTEOPENIA
     Route: 048
     Dates: start: 19991219, end: 20001001
  4. FOSAMAX [Suspect]
     Route: 048
     Dates: start: 20011212, end: 20051221
  5. PREMPRO [Concomitant]
     Route: 065
     Dates: start: 19970101, end: 19990101
  6. CALCIUM (UNSPECIFIED) [Concomitant]
     Route: 065
  7. PREMARIN [Concomitant]
     Route: 065
     Dates: start: 19920101, end: 20050101

REACTIONS (20)
  - ABSCESS ORAL [None]
  - BLOOD CHOLESTEROL INCREASED [None]
  - BREATH ODOUR [None]
  - CONCUSSION [None]
  - DIVERTICULUM [None]
  - DYSPLASTIC NAEVUS SYNDROME [None]
  - HAEMORRHOIDS [None]
  - MUSCLE STRAIN [None]
  - NAUSEA [None]
  - NERVE INJURY [None]
  - ORAL DISORDER [None]
  - OROPHARYNGEAL BLISTERING [None]
  - OSTEOARTHRITIS [None]
  - OSTEONECROSIS [None]
  - PARAESTHESIA ORAL [None]
  - RESORPTION BONE INCREASED [None]
  - ROAD TRAFFIC ACCIDENT [None]
  - SEPSIS [None]
  - SKIN ODOUR ABNORMAL [None]
  - TENOSYNOVITIS STENOSANS [None]
